FAERS Safety Report 8607095-X (Version None)
Quarter: 2012Q3

REPORT INFORMATION
  Report Type: 
  Country: None (occurrence: None)
  Receive Date: 20120821
  Receipt Date: 20120810
  Transmission Date: 20120928
  Serious: Yes (Hospitalization)
  Sender: FDA-Public Use
  Company Number: DE-BIOGENIDEC-2012BI024236

PATIENT
  Age: 48 Year
  Sex: Male
  Weight: 96 kg

DRUGS (2)
  1. TYSABRI [Suspect]
     Indication: MULTIPLE SCLEROSIS
     Route: 042
     Dates: start: 20070516, end: 20100801
  2. TYSABRI [Suspect]
     Route: 042
     Dates: start: 20101101

REACTIONS (4)
  - ACUTE MYOCARDIAL INFARCTION [None]
  - MYOSITIS [None]
  - PANIC ATTACK [None]
  - CORONARY ARTERY DISEASE [None]
